FAERS Safety Report 6375996-1 (Version None)
Quarter: 2009Q3

REPORT INFORMATION
  Report Type: 
  Country: None (occurrence: None)
  Receive Date: 20090921
  Receipt Date: 20090909
  Transmission Date: 20100115
  Serious: Yes (Hospitalization)
  Sender: FDA-Public Use
  Company Number: IDA-00262

PATIENT
  Age: 83 Year
  Sex: Female

DRUGS (4)
  1. INDERAL [Suspect]
     Indication: HYPERTENSION
     Dosage: ORAL
     Route: 048
     Dates: start: 19690101
  2. VASTAREL (TRIMETAZIDINE HYDROCHLORIDE) [Concomitant]
  3. INDAPAMIDE [Concomitant]
  4. CRESTOR [Concomitant]

REACTIONS (1)
  - INFARCTION [None]
